FAERS Safety Report 4845403-6 (Version None)
Quarter: 2005Q4

REPORT INFORMATION
  Report Type: 
  Country: None (occurrence: None)
  Receive Date: 20051125
  Receipt Date: 20051121
  Transmission Date: 20060501
  Serious: Yes (Other)
  Sender: FDA-Public Use
  Company Number: 2005S1000858

PATIENT
  Age: 3 Day
  Sex: Male

DRUGS (5)
  1. INOMAX [Suspect]
     Indication: LUNG DISORDER
     Dosage: 5 PPM; INH_GAS; INH; CONT INH
     Route: 055
     Dates: start: 20051116
  2. INOMAX [Suspect]
     Indication: PROPHYLAXIS
     Dosage: 5 PPM; INH_GAS; INH; CONT INH
     Route: 055
     Dates: start: 20051116
  3. FLUCLOXACILLIN (FLUCLOXACILLIN) [Concomitant]
  4. GENTAMICIN [Concomitant]
  5. MORPHINE [Concomitant]

REACTIONS (7)
  - DEVICE OCCLUSION [None]
  - ENDOTRACHEAL INTUBATION COMPLICATION [None]
  - NEONATAL RESPIRATORY ACIDOSIS [None]
  - PLATELET COUNT DECREASED [None]
  - POST PROCEDURAL COMPLICATION [None]
  - PULMONARY HAEMORRHAGE [None]
  - RESPIRATORY DISORDER [None]
